FAERS Safety Report 12284029 (Version 2)
Quarter: 2016Q3

REPORT INFORMATION
  Report Type: Spontaneous
  Country: GB (occurrence: GB)
  Receive Date: 20160419
  Receipt Date: 20160713
  Transmission Date: 20161109
  Serious: Yes (Other)
  Sender: FDA-Public Use
  Company Number: GB-BIOGEN-2014BI117639

PATIENT
  Sex: Female

DRUGS (1)
  1. TYSABRI [Suspect]
     Active Substance: NATALIZUMAB
     Indication: MULTIPLE SCLEROSIS
     Route: 042
     Dates: start: 2009, end: 20140807

REACTIONS (5)
  - JC virus granule cell neuronopathy [Unknown]
  - Nausea [Unknown]
  - Immune reconstitution inflammatory syndrome [Unknown]
  - Drug effect decreased [Unknown]
  - Progressive multifocal leukoencephalopathy [Unknown]
